FAERS Safety Report 5843818-0 (Version None)
Quarter: 2008Q3

REPORT INFORMATION
  Report Type: 
  Country: None (occurrence: None)
  Receive Date: 20080813
  Receipt Date: 20080730
  Transmission Date: 20090109
  Serious: Yes (Other)
  Sender: FDA-Public Use
  Company Number: PHEH2007US13367

PATIENT
  Sex: Male
  Weight: 101.59 kg

DRUGS (10)
  1. ZOMETA [Suspect]
     Indication: MULTIPLE MYELOMA
     Dosage: 4 MG, QW4
     Dates: end: 20060801
  2. THALIDOMIDE [Concomitant]
     Dosage: 200 MG, QD
     Route: 048
  3. ALLOPURINOL [Concomitant]
     Dosage: 100 MG, QD
     Route: 048
  4. CELEBREX [Concomitant]
     Dosage: 200 MG, UNK
     Route: 048
  5. ALLEGRA [Concomitant]
     Dosage: 60 MG, BID
  6. INTERFERON [Concomitant]
     Indication: MULTIPLE MYELOMA
     Dosage: 4 MILLION UNITS M-W-F
  7. ACYCLOVIR [Concomitant]
     Dosage: 800 MG, BID
  8. DYAZIDE [Concomitant]
     Dosage: 37.5 MG, QD
  9. HYDROCHLOROTHIAZIDE [Concomitant]
     Dosage: 25 MG, QD
  10. GEMFIBROZIL [Concomitant]
     Dosage: 600 MG, BID

REACTIONS (16)
  - BLOOD PRODUCT TRANSFUSION [None]
  - BONE DISORDER [None]
  - GINGIVAL ULCERATION [None]
  - HALLUCINATION [None]
  - LOOSE TOOTH [None]
  - MENTAL STATUS CHANGES [None]
  - MULTIPLE MYELOMA [None]
  - ORAL PAIN [None]
  - OSTEONECROSIS [None]
  - RENAL IMPAIRMENT [None]
  - SOFT TISSUE INFLAMMATION [None]
  - STEM CELL TRANSPLANT [None]
  - THROMBOTIC THROMBOCYTOPENIC PURPURA [None]
  - TOOTHACHE [None]
  - WOUND DEHISCENCE [None]
  - X-RAY ABNORMAL [None]
